FAERS Safety Report 7803074-0 (Version None)
Quarter: 2011Q4

REPORT INFORMATION
  Report Type: 
  Country: None (occurrence: None)
  Receive Date: 20111007
  Receipt Date: 20111004
  Transmission Date: 20120403
  Serious: Yes (Life-Threatening)
  Sender: FDA-Public Use
  Company Number: FR-PFIZER INC-2011236365

PATIENT
  Age: 54 Year
  Sex: Male

DRUGS (3)
  1. CYTARABINE [Suspect]
     Indication: ACUTE MYELOID LEUKAEMIA
     Dosage: 1830 MG, 2X/DAY
     Route: 042
     Dates: start: 20100408, end: 20100412
  2. MITOXANTRONE [Suspect]
     Indication: ACUTE MYELOID LEUKAEMIA
     Dosage: 21.96 MG, 1X/DAY
     Route: 042
     Dates: start: 20100408, end: 20100410
  3. GEMTUZUMAB OZOGAMICIN [Suspect]
     Indication: ACUTE MYELOID LEUKAEMIA
     Dosage: 10.98 MG, 1X/DAY
     Route: 042
     Dates: start: 20100408, end: 20100408

REACTIONS (5)
  - FEBRILE BONE MARROW APLASIA [None]
  - PSEUDOMONAS TEST POSITIVE [None]
  - SEPSIS [None]
  - CELLULITIS [None]
  - CARDIAC FAILURE [None]
